FAERS Safety Report 14004655 (Version 1)
Quarter: 2017Q3

REPORT INFORMATION
  Report Type: Spontaneous
  Country: FR (occurrence: FR)
  Receive Date: 20170922
  Receipt Date: 20170922
  Transmission Date: 20171128
  Serious: Yes (Hospitalization)
  Sender: FDA-Public Use
  Company Number: FR-JNJFOC-20170916559

PATIENT
  Age: 81 Year
  Sex: Female

DRUGS (7)
  1. XARELTO [Concomitant]
     Active Substance: RIVAROXABAN
     Route: 048
  2. LANTUS [Concomitant]
     Active Substance: INSULIN GLARGINE
     Route: 058
  3. VENLAFAXINE [Concomitant]
     Active Substance: VENLAFAXINE HYDROCHLORIDE
     Route: 048
  4. DOLIPRANE [Concomitant]
     Active Substance: ACETAMINOPHEN
     Route: 048
  5. DUROGESIC [Suspect]
     Active Substance: FENTANYL
     Indication: OSTEOPOROTIC FRACTURE
     Route: 062
     Dates: end: 201708
  6. DUROGESIC [Suspect]
     Active Substance: FENTANYL
     Indication: OSTEOPOROTIC FRACTURE
     Route: 062
     Dates: start: 20170822, end: 20170823
  7. NICORANDIL [Concomitant]
     Active Substance: NICORANDIL
     Route: 048

REACTIONS (5)
  - Coma [Recovered/Resolved]
  - Respiratory depression [Recovered/Resolved]
  - Overdose [Recovered/Resolved]
  - Hallucination [Recovered/Resolved]
  - Confusional state [Unknown]

NARRATIVE: CASE EVENT DATE: 2017
